FAERS Safety Report 14895929 (Version 1)
Quarter: 2018Q2

REPORT INFORMATION
  Report Type: Spontaneous
  Country: ES (occurrence: ES)
  Receive Date: 20180515
  Receipt Date: 20180515
  Transmission Date: 20180711
  Serious: Yes (Hospitalization, Other)
  Sender: FDA-Public Use
  Company Number: ES-AUROBINDO-AUR-APL-2018-025564

PATIENT
  Age: 54 Year
  Sex: Male
  Weight: 89 kg

DRUGS (5)
  1. HUMIRA [Suspect]
     Active Substance: ADALIMUMAB
     Dosage: UNK
     Route: 058
     Dates: start: 20180315
  2. HUMIRA [Suspect]
     Active Substance: ADALIMUMAB
     Indication: CROHN^S DISEASE
     Dosage: 40 MILLIGRAM, TWICE WEEKLY
     Route: 058
     Dates: start: 20140601, end: 201703
  3. ALOPURINOL [Concomitant]
     Active Substance: ALLOPURINOL
     Indication: BLOOD URIC ACID
     Dosage: 1 DOSAGE FORM, ONCE A DAY
     Route: 048
  4. PARACETAMOL [Suspect]
     Active Substance: ACETAMINOPHEN
     Indication: PYREXIA
     Dosage: AS NEEDED
     Route: 048
     Dates: start: 20171031
  5. HUMIRA [Suspect]
     Active Substance: ADALIMUMAB
     Dosage: 40 MILLIGRAM, TWICE WEEKLY
     Route: 058
     Dates: start: 201703, end: 201711

REACTIONS (8)
  - Toothache [Recovered/Resolved]
  - Nasopharyngitis [Not Recovered/Not Resolved]
  - Portal vein thrombosis [Recovering/Resolving]
  - Tooth infection [Recovered/Resolved]
  - Cholecystitis infective [Recovered/Resolved]
  - Chills [Not Recovered/Not Resolved]
  - Bacteraemia [Recovered/Resolved]
  - Hyperhidrosis [Recovered/Resolved]

NARRATIVE: CASE EVENT DATE: 201709
